FAERS Safety Report 25056450 (Version 2)
Quarter: 2025Q1

REPORT INFORMATION
  Report Type: Spontaneous
  Country: NO (occurrence: NO)
  Receive Date: 20250310
  Receipt Date: 20250313
  Transmission Date: 20250408
  Serious: Yes (Other)
  Sender: ABBVIE
  Company Number: NO-ALLERGAN-2214915US

PATIENT
  Sex: Female

DRUGS (1)
  1. OZURDEX [Suspect]
     Active Substance: DEXAMETHASONE
     Indication: Product used for unknown indication
     Route: 031

REACTIONS (4)
  - Blindness [Not Recovered/Not Resolved]
  - Corneal decompensation [Not Recovered/Not Resolved]
  - Complication of device insertion [Unknown]
  - Device dislocation [Unknown]
